FAERS Safety Report 15791977 (Version 4)
Quarter: 2019Q1

REPORT INFORMATION
  Report Type: Not Available
  Country: US (occurrence: US)
  Receive Date: 20190106
  Receipt Date: 20190307
  Transmission Date: 20190417
  Serious: Yes (Hospitalization)
  Sender: FDA-Public Use
  Company Number: US-NEUROCRINE BIOSCIENCES INC.-2018NBI03695

PATIENT
  Age: 51 Year
  Sex: Male

DRUGS (12)
  1. LYRICA [Concomitant]
     Active Substance: PREGABALIN
     Dates: end: 201811
  2. INGREZZA [Suspect]
     Active Substance: VALBENAZINE
     Indication: TARDIVE DYSKINESIA
     Route: 048
     Dates: start: 20181104
  3. HUMALOG [Concomitant]
     Active Substance: INSULIN LISPRO
  4. OMEPRAZOLE. [Concomitant]
     Active Substance: OMEPRAZOLE
     Dates: end: 201811
  5. AMITRIPTYLINE [Concomitant]
     Active Substance: AMITRIPTYLINE
     Dates: end: 201811
  6. BACLOFEN. [Concomitant]
     Active Substance: BACLOFEN
     Dates: end: 201811
  7. BASAGLAR [Concomitant]
     Active Substance: INSULIN GLARGINE
  8. KLONOPIN [Concomitant]
     Active Substance: CLONAZEPAM
     Dates: end: 201811
  9. SAPHRIS [Concomitant]
     Active Substance: ASENAPINE MALEATE
     Dates: end: 201811
  10. INDOMETHACIN. [Concomitant]
     Active Substance: INDOMETHACIN
     Dates: end: 201811
  11. ATORVASTATIN [Concomitant]
     Active Substance: ATORVASTATIN
     Dates: end: 201811
  12. ARTANE [Concomitant]
     Active Substance: TRIHEXYPHENIDYL HYDROCHLORIDE
     Dates: end: 201811

REACTIONS (2)
  - Substance abuse [Unknown]
  - Diabetic ketoacidosis [Recovered/Resolved]

NARRATIVE: CASE EVENT DATE: 201811
